FAERS Safety Report 10851282 (Version 1)
Quarter: 2015Q1

REPORT INFORMATION
  Report Type: Spontaneous
  Country: None (occurrence: US)
  Receive Date: 20150222
  Receipt Date: 20150222
  Transmission Date: 20150721
  Serious: No
  Sender: FDA-Public Use
  Company Number: US-ALLERGAN-1408705US

PATIENT
  Age: 64 Year
  Sex: Female

DRUGS (5)
  1. VITAMINS [Concomitant]
     Active Substance: VITAMINS
     Indication: SUPPLEMENTATION THERAPY
     Dosage: UNK
  2. COQ10 [Concomitant]
     Active Substance: UBIDECARENONE
     Indication: SUPPLEMENTATION THERAPY
     Dosage: UNK
  3. BOTOX COSMETIC [Suspect]
     Active Substance: ONABOTULINUMTOXINA
     Indication: SKIN WRINKLING
  4. BOTOX COSMETIC [Suspect]
     Active Substance: ONABOTULINUMTOXINA
     Indication: SKIN WRINKLING
     Dosage: 25 UNITS, SINGLE
     Route: 030
     Dates: start: 20140330, end: 20140330
  5. FISH OIL [Concomitant]
     Active Substance: FISH OIL
     Indication: SUPPLEMENTATION THERAPY
     Dosage: UNK

REACTIONS (13)
  - Nausea [Unknown]
  - VIIth nerve paralysis [Recovered/Resolved]
  - Brow ptosis [Not Recovered/Not Resolved]
  - Eyelid ptosis [Recovering/Resolving]
  - Injection site reaction [Not Recovered/Not Resolved]
  - Skin wrinkling [Not Recovered/Not Resolved]
  - Eye swelling [Not Recovered/Not Resolved]
  - Headache [Unknown]
  - Malaise [Recovering/Resolving]
  - Diplopia [Not Recovered/Not Resolved]
  - Rash erythematous [Unknown]
  - Facial paresis [Recovering/Resolving]
  - Hypertonic bladder [Recovered/Resolved]
